FAERS Safety Report 4704068-4 (Version None)
Quarter: 2005Q2

REPORT INFORMATION
  Report Type: 
  Country: None (occurrence: None)
  Receive Date: 20050630
  Receipt Date: 20050512
  Transmission Date: 20051028
  Serious: Yes (Hospitalization)
  Sender: FDA-Public Use
  Company Number: FR-BRISTOL-MYERS SQUIBB COMPANY-13017520

PATIENT
  Age: 53 Year
  Sex: Male

DRUGS (6)
  1. AZACTAM [Suspect]
     Route: 042
     Dates: start: 20041104, end: 20041130
  2. FOSFOCINE [Suspect]
     Route: 042
     Dates: start: 20041104, end: 20041130
  3. LASIX [Suspect]
     Route: 042
     Dates: end: 20041208
  4. OFLOCET [Suspect]
     Route: 042
     Dates: start: 20041118, end: 20041206
  5. ARANESP [Concomitant]
     Route: 058
     Dates: start: 20041107
  6. OMEPRAZOLE [Concomitant]
     Dates: start: 20041102

REACTIONS (1)
  - POLYNEUROPATHY [None]
